FAERS Safety Report 4480105-X (Version None)
Quarter: 2004Q4

REPORT INFORMATION
  Report Type: 
  Country: None (occurrence: None)
  Receive Date: 20041018
  Receipt Date: 20041007
  Transmission Date: 20050328
  Serious: Yes (Other)
  Sender: FDA-Public Use
  Company Number: K200401535

PATIENT
  Age: 83 Year
  Sex: Female

DRUGS (9)
  1. LEVOXYL [Suspect]
     Indication: HYPOTHYROIDISM
     Dosage: SEE IMAGE
     Route: 048
     Dates: start: 20010101, end: 20031201
  2. LEVOXYL [Suspect]
     Indication: HYPOTHYROIDISM
     Dosage: SEE IMAGE
     Route: 048
     Dates: start: 20031201
  3. LEVOXYL [Suspect]
     Indication: HYPOTHYROIDISM
     Dosage: SEE IMAGE
     Route: 048
     Dates: start: 20031201
  4. TUMS (CALCIUM CARBONATE) [Concomitant]
  5. FUROSEMIDE [Concomitant]
  6. TOPROL (METOPROLOL SUCCINATE) [Concomitant]
  7. PLAQUENIL [Concomitant]
  8. ENTERIC ASPIRIN (ACETYLSALICYLIC ACID) [Concomitant]
  9. ADVIL [Concomitant]

REACTIONS (4)
  - CARDIAC DISORDER [None]
  - DRY MOUTH [None]
  - FOREIGN BODY TRAUMA [None]
  - PALPITATIONS [None]
